FAERS Safety Report 14601591 (Version 1)
Quarter: 2018Q1

REPORT INFORMATION
  Report Type: Spontaneous
  Country: AT (occurrence: AT)
  Receive Date: 20180306
  Receipt Date: 20180306
  Transmission Date: 20180509
  Serious: Yes (Death, Hospitalization, Other)
  Sender: FDA-Public Use
  Company Number: AT-BAXTER-2018BAX006420

PATIENT
  Sex: Male

DRUGS (4)
  1. PHYSIONEAL 40 GLUCOSE 1,36% W/V/13,6 MG/ML - PERITONEALDIALYSEL?SUNG [Suspect]
     Active Substance: CALCIUM CHLORIDE\DEXTROSE\MAGNESIUM CHLORIDE\SODIUM CHLORIDE SOLUTION
     Indication: END STAGE RENAL DISEASE
  2. EXTRANEAL [Suspect]
     Active Substance: CALCIUM CHLORIDE\ICODEXTRIN\MAGNESIUM CHLORIDE\SODIUM CHLORIDE\SODIUM LACTATE
     Indication: END STAGE RENAL DISEASE
  3. PHYSIONEAL 40 GLUCOSE 1,36% W/V/13,6 MG/ML - PERITONEALDIALYSEL?SUNG [Suspect]
     Active Substance: CALCIUM CHLORIDE\DEXTROSE\MAGNESIUM CHLORIDE\SODIUM CHLORIDE SOLUTION
     Indication: PERITONEAL DIALYSIS
     Route: 033
     Dates: start: 200606
  4. EXTRANEAL [Suspect]
     Active Substance: CALCIUM CHLORIDE\ICODEXTRIN\MAGNESIUM CHLORIDE\SODIUM CHLORIDE\SODIUM LACTATE
     Indication: PERITONEAL DIALYSIS
     Route: 033
     Dates: start: 200606

REACTIONS (13)
  - Arteriosclerosis [Unknown]
  - Mesenteric artery stenosis [Unknown]
  - Pleural effusion [Unknown]
  - General physical health deterioration [Unknown]
  - Splenic infarction [Unknown]
  - Hypokalaemia [Unknown]
  - Splenic artery stenosis [Unknown]
  - Hypotonia [Unknown]
  - Abdominal pain [Unknown]
  - Pneumonia [Fatal]
  - Pulmonary embolism [Unknown]
  - Infection [Unknown]
  - Hypothermia [Unknown]
